FAERS Safety Report 8798297 (Version 1)
Quarter: 2012Q4

REPORT INFORMATION
  Report Type: 
  Country: US (occurrence: US)
  Receive Date: 20120920
  Receipt Date: 20120920
  Transmission Date: 20130627
  Serious: Yes (Other)
  Sender: FDA-Public Use
  Company Number: US-ROCHE-1098781

PATIENT
  Age: 90 Year
  Sex: Female
  Weight: 54.48 kg

DRUGS (4)
  1. BONIVA [Suspect]
     Indication: OSTEOPOROSIS
     Route: 048
     Dates: start: 20100506, end: 20120608
  2. CLONAZEPAM [Concomitant]
     Indication: INSOMNIA
     Route: 065
  3. PLAVIX [Concomitant]
     Indication: TRANSIENT ISCHAEMIC ATTACK
     Route: 065
  4. DIOVAN [Concomitant]
     Indication: HYPERTENSION
     Route: 065

REACTIONS (1)
  - Oesophagitis [Not Recovered/Not Resolved]
